FAERS Safety Report 7772053-4 (Version None)
Quarter: 2011Q3

REPORT INFORMATION
  Report Type: 
  Country: None (occurrence: None)
  Receive Date: 20110922
  Receipt Date: 20100106
  Transmission Date: 20111222
  Serious: Yes (Hospitalization)
  Sender: FDA-Public Use
  Company Number: US-ASTRAZENECA-2009UW15407

PATIENT
  Age: 14833 Day
  Sex: Male
  Weight: 106.6 kg

DRUGS (14)
  1. SEROQUEL [Suspect]
     Indication: BIPOLAR DISORDER
     Dosage: 25 TO 400 MG
     Route: 048
     Dates: start: 20070201, end: 20081001
  2. HALDOL [Concomitant]
     Dates: start: 20060101, end: 20070101
  3. SEROQUEL [Suspect]
     Dosage: 25 TO 100 MG
     Route: 048
     Dates: start: 20070217
  4. THIAMINE HCL [Concomitant]
     Dates: start: 20070328
  5. GEODON [Concomitant]
     Dates: start: 20080101, end: 20090101
  6. SEROQUEL [Suspect]
     Dosage: 25 TO 100 MG
     Route: 048
     Dates: start: 20070217
  7. ZYPREXA/SYMBYAX [Concomitant]
     Dates: start: 20090101
  8. SEROQUEL [Suspect]
     Indication: ANXIETY
     Dosage: 25 TO 400 MG
     Route: 048
     Dates: start: 20070201, end: 20081001
  9. SEROQUEL [Suspect]
     Dosage: 25 TO 100 MG
     Route: 048
     Dates: start: 20070217
  10. CLOZAPINE [Concomitant]
     Dates: start: 20080101
  11. NADOLOL [Concomitant]
     Dates: start: 20070328
  12. LITHIUM CARBONATE [Concomitant]
     Dates: start: 20070328
  13. ABILIFY [Concomitant]
     Dates: start: 20080601
  14. SEROQUEL [Suspect]
     Indication: SCHIZOPHRENIA
     Dosage: 25 TO 400 MG
     Route: 048
     Dates: start: 20070201, end: 20081001

REACTIONS (4)
  - GASTROOESOPHAGEAL REFLUX DISEASE [None]
  - DIABETES MELLITUS INADEQUATE CONTROL [None]
  - TYPE 2 DIABETES MELLITUS [None]
  - ADVERSE DRUG REACTION [None]
